FAERS Safety Report 5373593-8 (Version None)
Quarter: 2007Q2

REPORT INFORMATION
  Report Type: 
  Country: None (occurrence: None)
  Receive Date: 20070628
  Receipt Date: 20070615
  Transmission Date: 20071010
  Serious: Yes (Other)
  Sender: FDA-Public Use
  Company Number: NL-PURDUE-GBR_2007_0003041

PATIENT
  Age: 60 Year
  Sex: Female

DRUGS (1)
  1. PALLADONE [Suspect]
     Indication: DRUG USE FOR UNKNOWN INDICATION
     Dosage: 1.3 MG, BID
     Route: 065
     Dates: start: 20070525, end: 20070604

REACTIONS (2)
  - STEVENS-JOHNSON SYNDROME [None]
  - TONGUE DISORDER [None]
